FAERS Safety Report 4380890-1 (Version None)
Quarter: 2004Q2

REPORT INFORMATION
  Report Type: 
  Country: None (occurrence: None)
  Receive Date: 20040616
  Receipt Date: 20040608
  Transmission Date: 20050107
  Serious: Yes (Hospitalization)
  Sender: FDA-Public Use
  Company Number: AT-JNJFOC-20040601971

PATIENT
  Age: 55 Year
  Sex: Male

DRUGS (2)
  1. FENTANYL [Suspect]
     Indication: POST PROCEDURAL PAIN
     Dosage: 25 UG; TRANSDERMAL
     Route: 062
     Dates: start: 20030501
  2. NALOXONE [Suspect]
     Indication: PRURITUS
     Dosage: 50 MG; ORAL
     Route: 048
     Dates: start: 20030101

REACTIONS (26)
  - ABDOMINAL PAIN UPPER [None]
  - AGITATION [None]
  - AUTOMATISM [None]
  - BLOOD PRESSURE INCREASED [None]
  - C-REACTIVE PROTEIN INCREASED [None]
  - CEREBROVASCULAR DISORDER [None]
  - CHEST PAIN [None]
  - CHILLS [None]
  - DIARRHOEA [None]
  - DRUG EFFECT DECREASED [None]
  - DRUG INEFFECTIVE [None]
  - DRUG WITHDRAWAL SYNDROME [None]
  - EYE MOVEMENT DISORDER [None]
  - GAMMA-GLUTAMYLTRANSFERASE INCREASED [None]
  - HAEMODIALYSIS [None]
  - LIPOMA [None]
  - MIOSIS [None]
  - MUSCLE SPASMS [None]
  - OCULOCEPHALOGYRIC REFLEX ABSENT [None]
  - PHYSICAL EXAMINATION ABNORMAL [None]
  - SOMNOLENCE [None]
  - STUPOR [None]
  - TACHYCARDIA [None]
  - URAEMIC PRURITUS [None]
  - VOMITING [None]
  - YAWNING [None]
